FAERS Safety Report 23024011 (Version 1)
Quarter: 2023Q4

REPORT INFORMATION
  Report Type: Report from Study
  Country: DE (occurrence: DE)
  Receive Date: 20231003
  Receipt Date: 20231003
  Transmission Date: 20240109
  Serious: Yes (Other)
  Sender: FDA-Public Use
  Company Number: DE-002147023-NVSC2023DE091420

PATIENT
  Age: 68 Year
  Sex: Female
  Weight: 102 kg

DRUGS (3)
  1. FILGRASTIM [Suspect]
     Active Substance: FILGRASTIM
     Indication: Haematopoietic stem cell mobilisation
     Dosage: UNK, 8X 48MU/0,5M
     Route: 048
     Dates: start: 20130228, end: 20130304
  2. FILGRASTIM [Suspect]
     Active Substance: FILGRASTIM
     Dosage: UNK
     Route: 065
     Dates: start: 201712
  3. LEVOTHYROXINE [Concomitant]
     Active Substance: LEVOTHYROXINE
     Indication: Hypothyroidism
     Dosage: 125 UG, QD
     Route: 048
     Dates: start: 20230410

REACTIONS (6)
  - Breast cancer [Not Recovered/Not Resolved]
  - Tibia fracture [Recovered/Resolved]
  - Accident [Recovered/Resolved]
  - Ligament rupture [Recovered/Resolved]
  - Osteoarthritis [Recovered/Resolved]
  - Bone pain [Recovered/Resolved]

NARRATIVE: CASE EVENT DATE: 20130301
